FAERS Safety Report 4629199-9 (Version None)
Quarter: 2005Q2

REPORT INFORMATION
  Report Type: 
  Country: None (occurrence: None)
  Receive Date: 20050405
  Receipt Date: 20050322
  Transmission Date: 20051028
  Serious: Yes (Hospitalization)
  Sender: FDA-Public Use
  Company Number: 2005-126673-NL

PATIENT
  Age: 32 Year
  Sex: Female

DRUGS (1)
  1. NUVARING [Suspect]
     Indication: CONTRACEPTION
     Dosage: VAGINAL, INSERT 1 RING X21 DAYS AND REMOVE X7 DAYS
     Route: 067
     Dates: start: 20030401, end: 20050312

REACTIONS (2)
  - LONG QT SYNDROME [None]
  - MYOCARDIAL INFARCTION [None]
